FAERS Safety Report 17902068 (Version 1)
Quarter: 2020Q2

REPORT INFORMATION
  Report Type: Report from Study
  Country: US (occurrence: US)
  Receive Date: 20200616
  Receipt Date: 20200616
  Transmission Date: 20200714
  Serious: Yes (Hospitalization)
  Sender: FDA-Public Use
  Company Number: US-IPSEN BIOPHARMACEUTICALS, INC.-2020-10528

PATIENT
  Sex: Male

DRUGS (3)
  1. SOMATULINE DEPOT [Suspect]
     Active Substance: LANREOTIDE ACETATE
     Indication: ACROMEGALY
     Route: 065
  2. VINBLASTIN [Suspect]
     Active Substance: VINBLASTINE
     Indication: OPTIC NERVE NEOPLASM
     Dates: start: 202003
  3. AVASTIN [Suspect]
     Active Substance: BEVACIZUMAB
     Indication: OPTIC NERVE NEOPLASM
     Dates: start: 202003

REACTIONS (8)
  - Injection site pain [Unknown]
  - Off label use [Unknown]
  - Diarrhoea [Unknown]
  - Drug ineffective [Unknown]
  - Neutropenia [Unknown]
  - Pain [Unknown]
  - Constipation [Unknown]
  - Visual impairment [Unknown]
